FAERS Safety Report 8029580-4 (Version None)
Quarter: 2012Q1

REPORT INFORMATION
  Report Type: 
  Country: None (occurrence: None)
  Receive Date: 20120109
  Receipt Date: 20120104
  Transmission Date: 20120608
  Serious: No
  Sender: FDA-Public Use
  Company Number: US-PFIZER INC-2012002665

PATIENT
  Sex: Male
  Weight: 68.027 kg

DRUGS (2)
  1. EFFEXOR XR [Suspect]
     Indication: ANXIETY
     Dosage: 75 MG, 1X/DAY
     Route: 048
     Dates: start: 20050901
  2. EFFEXOR XR [Suspect]
     Indication: DEPRESSION

REACTIONS (4)
  - HEADACHE [None]
  - MEDICATION ERROR [None]
  - PARAESTHESIA [None]
  - SOMNOLENCE [None]
